FAERS Safety Report 4587910-X (Version None)
Quarter: 2005Q1

REPORT INFORMATION
  Report Type: 
  Country: None (occurrence: None)
  Receive Date: 20050219
  Receipt Date: 20050214
  Transmission Date: 20050727
  Serious: Yes (Death, Life-Threatening, Hospitalization)
  Sender: FDA-Public Use
  Company Number: PHHO2005JP02719

PATIENT
  Age: 6 Year
  Sex: Female
  Weight: 16 kg

DRUGS (16)
  1. CELLCEPT [Suspect]
     Indication: LUNG TRANSPLANT
     Dates: start: 20041215
  2. CELLCEPT [Suspect]
     Dosage: UNK, UNK
     Dates: start: 20040924
  3. PREDONINE [Suspect]
     Indication: LUNG TRANSPLANT
     Dosage: 15MG DAILY
     Dates: start: 20041214
  4. NEORAL [Suspect]
     Indication: LUNG TRANSPLANT
     Dosage: UNK, UNK
     Dates: start: 20050206
  5. NEORAL [Suspect]
     Dates: start: 20040903
  6. NEORAL [Suspect]
     Dosage: UNK, UNK
     Dates: start: 20041214, end: 20050205
  7. LYMPHOGLOBULINE [Concomitant]
  8. PROGRAF [Concomitant]
     Indication: BONE MARROW TRANSPLANT
     Dates: start: 20040301, end: 20040903
  9. THALIDOMIDE [Concomitant]
     Dates: start: 20041110, end: 20041207
  10. SOLU-MEDROL [Concomitant]
     Dosage: 450MG DAILY
     Dates: start: 20041119, end: 20041121
  11. METHYLPREDNISOLONE [Suspect]
     Indication: LUNG TRANSPLANT
     Dosage: 250MG DAILY
     Dates: start: 20041214, end: 20041222
  12. MEROPEN [Concomitant]
     Dates: start: 20041213, end: 20050212
  13. CEFOTIAM HYDROCHLORIDE [Concomitant]
     Dates: start: 20041213, end: 20041215
  14. GENTAMICIN [Concomitant]
     Dates: start: 20041220, end: 20041222
  15. VANCOMYCIN [Concomitant]
     Dosage: 600MG DAILY
     Dates: start: 20041221, end: 20041227
  16. DENOSINE [Concomitant]
     Dosage: 150MG DAILY
     Dates: start: 20041220, end: 20050212

REACTIONS (8)
  - ASPERGILLOSIS [None]
  - HEPATIC FUNCTION ABNORMAL [None]
  - ILEUS PARALYTIC [None]
  - MULTI-ORGAN FAILURE [None]
  - PLATELET COUNT DECREASED [None]
  - RENAL FAILURE [None]
  - SEPSIS [None]
  - WHITE BLOOD CELL COUNT DECREASED [None]
